FAERS Safety Report 15579852 (Version 1)
Quarter: 2018Q4

REPORT INFORMATION
  Report Type: Spontaneous
  Country: US (occurrence: US)
  Receive Date: 20181102
  Receipt Date: 20181102
  Transmission Date: 20190205
  Serious: Yes (Hospitalization)
  Sender: FDA-Public Use
  Company Number: None

PATIENT
  Sex: Female

DRUGS (1)
  1. ESBRIET [Suspect]
     Active Substance: PIRFENIDONE
     Indication: IDIOPATHIC PULMONARY FIBROSIS
     Route: 048
     Dates: start: 20171202

REACTIONS (7)
  - Hepatic enzyme increased [None]
  - Weight decreased [None]
  - Hypotension [None]
  - Mobility decreased [None]
  - Asthenia [None]
  - Back pain [None]
  - Hypophagia [None]
